FAERS Safety Report 4357180-6 (Version None)
Quarter: 2004Q2

REPORT INFORMATION
  Report Type: 
  Country: None (occurrence: None)
  Receive Date: 20040511
  Receipt Date: 20040511
  Transmission Date: 20050107
  Serious: Yes (Hospitalization)
  Sender: FDA-Public Use
  Company Number: None

PATIENT
  Age: 82 Year
  Sex: Male
  Weight: 59.4 kg

DRUGS (14)
  1. COUMADIN [Suspect]
     Indication: AORTIC VALVE REPLACEMENT
     Dosage: 3.75 MG, ORAL
     Route: 048
  2. ALPRAZOLAM [Concomitant]
  3. URINAL [Concomitant]
  4. BRIMONIDINE [Concomitant]
  5. WHITE PETROLATUM [Concomitant]
  6. TERAZOSIN HCL [Concomitant]
  7. AMMONIUM LACTATE [Concomitant]
  8. ALBUTEROL INHAL [Concomitant]
  9. ASPIRIN [Concomitant]
  10. DIGOXIN [Concomitant]
  11. FLUNISOLIDE [Concomitant]
  12. DILTIAZEM [Concomitant]
  13. IPRATROPIUM INHAL SOLN [Concomitant]
  14. RANITIDINE [Concomitant]

REACTIONS (3)
  - HAEMATURIA [None]
  - HAEMOPTYSIS [None]
  - INTERNATIONAL NORMALISED RATIO INCREASED [None]
